FAERS Safety Report 5591530-8 (Version None)
Quarter: 2007Q4

REPORT INFORMATION
  Report Type: 
  Country: None (occurrence: None)
  Receive Date: 20071212
  Receipt Date: 20070611
  Transmission Date: 20080405
  Serious: Yes (Other)
  Sender: FDA-Public Use
  Company Number: USA-2007-0027831

PATIENT
  Age: 14 Year
  Sex: Female

DRUGS (5)
  1. OXYCONTIN [Suspect]
     Indication: DRUG ABUSER
  2. MORPHINE SULFATE [Suspect]
     Indication: DRUG ABUSER
  3. XANAX [Suspect]
     Indication: DRUG ABUSER
  4. PERCOCET [Suspect]
     Indication: DRUG ABUSER
  5. VICODIN [Suspect]
     Indication: DRUG ABUSER

REACTIONS (1)
  - SUBSTANCE ABUSE [None]
